FAERS Safety Report 8193561-0 (Version None)
Quarter: 2012Q1

REPORT INFORMATION
  Report Type: 
  Country: None (occurrence: None)
  Receive Date: 20120308
  Receipt Date: 20120228
  Transmission Date: 20120608
  Serious: Yes (Congenital Anomaly)
  Sender: FDA-Public Use
  Company Number: FR-FRI-1000028867

PATIENT
  Sex: Female
  Weight: 3.6 kg

DRUGS (2)
  1. ESCITALOPRAM [Suspect]
     Dosage: 10 MG
     Route: 064
     Dates: end: 20120204
  2. ZOLOFT [Concomitant]
     Route: 063
     Dates: start: 20120201

REACTIONS (3)
  - GAZE PALSY [None]
  - MATERNAL EXPOSURE DURING PREGNANCY [None]
  - TREMOR [None]
